FAERS Safety Report 16379124 (Version 3)
Quarter: 2019Q3

REPORT INFORMATION
  Report Type: Spontaneous
  Country: US (occurrence: US)
  Receive Date: 20190531
  Receipt Date: 20190702
  Transmission Date: 20191004
  Serious: Yes (Hospitalization, Other)
  Sender: FDA-Public Use
  Company Number: US-ADAMAS PHARMA, LLC-2019ADA01186

PATIENT
  Age: 62 Year
  Sex: Female
  Weight: 61.22 kg

DRUGS (16)
  1. UNSPECIFIED CREAM FOR ROSACEA [Concomitant]
  2. GOCOVRI [Suspect]
     Active Substance: AMANTADINE
     Dosage: 274 MG, 1X/DAY AT BEDTIME
     Route: 048
     Dates: start: 20190218, end: 20190513
  3. RYTARY [Concomitant]
     Active Substance: CARBIDOPA\LEVODOPA
     Dosage: 5 DOSAGE UNITS, 4X/DAY
  4. SYMBICORT [Concomitant]
     Active Substance: BUDESONIDE\FORMOTEROL FUMARATE DIHYDRATE
  5. SELEGILINE [Concomitant]
     Active Substance: SELEGILINE
  6. ASTELIN [Concomitant]
     Active Substance: AZELASTINE HYDROCHLORIDE
  7. CALCIUM [Concomitant]
     Active Substance: CALCIUM
  8. RISEDRONATE [Concomitant]
     Active Substance: RISEDRONATE SODIUM
     Dosage: 35 MG, 1X/WEEK
  9. FLONASE [Concomitant]
     Active Substance: FLUTICASONE PROPIONATE
  10. GOCOVRI [Suspect]
     Active Substance: AMANTADINE
     Indication: DYSKINESIA
     Dosage: 137 MG, 1X/DAY AT BEDTIME
     Route: 048
     Dates: start: 20190211, end: 20190217
  11. GOCOVRI [Suspect]
     Active Substance: AMANTADINE
     Dosage: 274 MG, 1X/DAY AT BEDTIME
     Route: 048
     Dates: start: 201906
  12. TRAMADOL. [Concomitant]
     Active Substance: TRAMADOL
     Dosage: UNK, AS NEEDED
  13. VITAMIN D [Concomitant]
     Active Substance: VITAMIN D NOS
  14. MECLIZINE [Concomitant]
     Active Substance: MECLIZINE HYDROCHLORIDE
     Dosage: UNK, AS NEEDED
  15. VESICARE [Concomitant]
     Active Substance: SOLIFENACIN SUCCINATE
  16. MUCINEX [Concomitant]
     Active Substance: GUAIFENESIN

REACTIONS (7)
  - Dizziness [Not Recovered/Not Resolved]
  - Upper limb fracture [Not Recovered/Not Resolved]
  - Product substitution [Recovered/Resolved]
  - Dry mouth [Not Recovered/Not Resolved]
  - Shoulder operation [Recovered/Resolved]
  - Fall [Unknown]
  - Muscle rigidity [Not Recovered/Not Resolved]

NARRATIVE: CASE EVENT DATE: 2019
